FAERS Safety Report 21747171 (Version 1)
Quarter: 2022Q4

REPORT INFORMATION
  Report Type: Spontaneous
  Country: US (occurrence: US)
  Receive Date: 20221219
  Receipt Date: 20221219
  Transmission Date: 20230112
  Serious: No
  Sender: FDA-Public Use
  Company Number: US-KYOWAKIRIN-2022BKK019612

PATIENT

DRUGS (1)
  1. CRYSVITA [Suspect]
     Active Substance: BUROSUMAB-TWZA
     Indication: Phosphorus metabolism disorder
     Dosage: 10 MG, 1X/2 WEEKS
     Route: 058
     Dates: start: 20221108

REACTIONS (4)
  - Abdominal pain upper [Unknown]
  - Pyrexia [Unknown]
  - Headache [Unknown]
  - Product use in unapproved indication [Not Recovered/Not Resolved]

NARRATIVE: CASE EVENT DATE: 20221108
